FAERS Safety Report 6878859-8 (Version None)
Quarter: 2010Q3

REPORT INFORMATION
  Report Type: 
  Country: None (occurrence: None)
  Receive Date: 20100728
  Receipt Date: 20100721
  Transmission Date: 20110219
  Serious: Yes (Death)
  Sender: FDA-Public Use
  Company Number: PHHO2010DE11142

PATIENT

DRUGS (2)
  1. TASIGNA [Suspect]
     Indication: ACUTE MYELOID LEUKAEMIA
  2. AFINITOR [Suspect]

REACTIONS (1)
  - DEATH [None]
